FAERS Safety Report 26176043 (Version 1)
Quarter: 2025Q4

REPORT INFORMATION
  Report Type: Spontaneous
  Country: US (occurrence: US)
  Receive Date: 20251218
  Receipt Date: 20251218
  Transmission Date: 20260118
  Serious: No
  Sender: INCYTE
  Company Number: US-EVENT-005225

PATIENT

DRUGS (1)
  1. NIKTIMVO [Suspect]
     Active Substance: AXATILIMAB-CSFR
     Dosage: 0.3 MILLIGRAM/KILOGRAM
     Route: 065

REACTIONS (1)
  - Blood creatine phosphokinase increased [Unknown]
